FAERS Safety Report 24193389 (Version 1)
Quarter: 2024Q3

REPORT INFORMATION
  Report Type: Spontaneous
  Country: US (occurrence: US)
  Receive Date: 20240809
  Receipt Date: 20240809
  Transmission Date: 20241017
  Serious: Yes (Hospitalization, Other)
  Sender: NOVITIUM PHARMA
  Company Number: US-NOVITIUMPHARMA-2024USNVP01512

PATIENT
  Age: 66 Year
  Sex: Male

DRUGS (4)
  1. PREDNISONE [Suspect]
     Active Substance: PREDNISONE
     Indication: Drug reaction with eosinophilia and systemic symptoms
     Dosage: PROLONGED STEROID TAPER
  2. PREDNISONE [Suspect]
     Active Substance: PREDNISONE
     Dosage: DECREASING DOSE
  3. PREDNISONE [Suspect]
     Active Substance: PREDNISONE
     Dosage: USE OF HIGH-DOSE
  4. METHYLPREDNISOLONE [Concomitant]
     Active Substance: METHYLPREDNISOLONE
     Indication: Drug reaction with eosinophilia and systemic symptoms

REACTIONS (2)
  - Herpes simplex encephalitis [Recovering/Resolving]
  - Herpes simplex reactivation [Recovering/Resolving]
